FAERS Safety Report 16854916 (Version 1)
Quarter: 2019Q3

REPORT INFORMATION
  Report Type: Spontaneous
  Country: GB (occurrence: GB)
  Receive Date: 20190926
  Receipt Date: 20190926
  Transmission Date: 20191005
  Serious: Yes (Other)
  Sender: FDA-Public Use
  Company Number: GB-AUROBINDO-AUR-APL-2019-061966

PATIENT
  Age: 47 Year
  Sex: Male

DRUGS (3)
  1. FOSFOMYCIN [Concomitant]
     Active Substance: FOSFOMYCIN
     Indication: URINARY TRACT INFECTION
     Dosage: 1 DOSAGE FORM, IN TOTAL
     Route: 065
     Dates: start: 2018, end: 2018
  2. CIPROFLOXACIN. [Suspect]
     Active Substance: CIPROFLOXACIN
     Indication: URINARY TRACT INFECTION
     Dosage: 1000 MILLIGRAM, ONCE A DAY
     Route: 065
     Dates: start: 2018
  3. CIPROFLOXACIN. [Suspect]
     Active Substance: CIPROFLOXACIN
     Dosage: 1000 MILLIGRAM, ONCE A DAY
     Route: 065
     Dates: start: 201905

REACTIONS (10)
  - Ligament injury [Not Recovered/Not Resolved]
  - Burning sensation [Not Recovered/Not Resolved]
  - Escherichia infection [Not Recovered/Not Resolved]
  - Plantar fasciitis [Not Recovered/Not Resolved]
  - Arthralgia [Not Recovered/Not Resolved]
  - Joint noise [Not Recovered/Not Resolved]
  - Ligament sprain [Not Recovered/Not Resolved]
  - Vitreous floaters [Unknown]
  - Musculoskeletal pain [Not Recovered/Not Resolved]
  - Visual impairment [Unknown]

NARRATIVE: CASE EVENT DATE: 2018
